FAERS Safety Report 24951396 (Version 1)
Quarter: 2025Q1

REPORT INFORMATION
  Report Type: Spontaneous
  Country: AU (occurrence: AU)
  Receive Date: 20250210
  Receipt Date: 20250210
  Transmission Date: 20250408
  Serious: Yes (Other)
  Sender: TORRENT PHARMA INC.
  Company Number: AU-TORRENT-00000583

PATIENT
  Sex: Male

DRUGS (1)
  1. OLANZAPINE [Suspect]
     Active Substance: OLANZAPINE
     Indication: Product used for unknown indication
     Route: 065

REACTIONS (5)
  - Coronary artery disease [Unknown]
  - Dyskinesia [Unknown]
  - Myocardial ischaemia [Unknown]
  - Neuralgia [Unknown]
  - Weight increased [Unknown]
